FAERS Safety Report 7079068-2 (Version None)
Quarter: 2010Q4

REPORT INFORMATION
  Report Type: 
  Country: None (occurrence: None)
  Receive Date: 20101102
  Receipt Date: 20101027
  Transmission Date: 20110411
  Serious: Yes (Other)
  Sender: FDA-Public Use
  Company Number: ZA-ROCHE-730229

PATIENT
  Sex: Female

DRUGS (5)
  1. TRASTUZUMAB [Suspect]
     Indication: BREAST CANCER
     Dosage: LOADING DOSE
     Route: 042
     Dates: start: 20081211
  2. TRASTUZUMAB [Suspect]
     Route: 042
  3. DOXORUBICIN HYDROCHLORIDE [Suspect]
     Route: 065
     Dates: start: 20080522, end: 20080905
  4. CYCLOPHOSPHAMIDE [Suspect]
     Route: 065
     Dates: start: 20080522, end: 20080905
  5. FLUOROURACIL [Suspect]
     Route: 065
     Dates: start: 20080522, end: 20080905

REACTIONS (2)
  - ALANINE AMINOTRANSFERASE INCREASED [None]
  - ASPARTATE AMINOTRANSFERASE INCREASED [None]
